FAERS Safety Report 18374727 (Version 1)
Quarter: 2020Q4

REPORT INFORMATION
  Report Type: Spontaneous
  Country: IN (occurrence: IN)
  Receive Date: 20201013
  Receipt Date: 20201013
  Transmission Date: 20210114
  Serious: Yes (Other)
  Sender: FDA-Public Use
  Company Number: IN-HTU-2020IN021130

PATIENT
  Age: 45 Year
  Sex: Male

DRUGS (15)
  1. APREPITANT. [Concomitant]
     Active Substance: APREPITANT
     Dosage: 80 MILLIGRAM, QD
     Route: 048
  2. AVIL                               /00085102/ [Concomitant]
     Active Substance: PHENIRAMINE MALEATE
     Dosage: 22.75 MILLIGRAM, UNKNOWN
     Route: 042
  3. PALONOSETRON HYDROCHLORIDE. [Suspect]
     Active Substance: PALONOSETRON HYDROCHLORIDE
     Indication: PROPHYLAXIS OF NAUSEA AND VOMITING
     Dosage: 0.25 MILLIGRAM, QD
     Route: 042
  4. DEXAMETHASONE. [Concomitant]
     Active Substance: DEXAMETHASONE
     Indication: PREMEDICATION
     Dosage: 8 MILLIGRAM, QD
     Route: 042
  5. APREPITANT. [Concomitant]
     Active Substance: APREPITANT
     Indication: PREMEDICATION
     Dosage: 125 MILLIGRAM, QD
     Route: 048
  6. CARBOPLATIN. [Concomitant]
     Active Substance: CARBOPLATIN
     Dosage: 750 MILLIGRAM, UNKNOWN
     Route: 041
  7. RANTAC [Concomitant]
     Active Substance: RANITIDINE HYDROCHLORIDE
     Dosage: 50 MILLIGRAM, UNKNOWN
     Route: 042
  8. ETOPOSIDE. [Concomitant]
     Active Substance: ETOPOSIDE
     Dosage: 170 MILLIGRAM, QD
     Route: 065
  9. CISPLATIN. [Concomitant]
     Active Substance: CISPLATIN
     Dosage: 56 MILLIGRAM, QD
     Route: 065
  10. PACLITAXEL. [Concomitant]
     Active Substance: PACLITAXEL
     Dosage: 288 MILLIGRAM, Q3H
     Route: 042
  11. ETOPOSIDE. [Concomitant]
     Active Substance: ETOPOSIDE
     Dosage: 165 MILLIGRAM, QD
     Route: 065
  12. ETOPOSIDE. [Concomitant]
     Active Substance: ETOPOSIDE
     Dosage: 170 MILLIGRAM, QD
     Route: 065
  13. APREPITANT. [Concomitant]
     Active Substance: APREPITANT
     Dosage: 80 MILLIGRAM, QD
     Route: 048
  14. CISPLATIN. [Concomitant]
     Active Substance: CISPLATIN
     Dosage: 55 MILLIGRAM, QD
     Route: 065
  15. CISPLATIN. [Concomitant]
     Active Substance: CISPLATIN
     Dosage: 56 MILLIGRAM, QD
     Route: 065

REACTIONS (1)
  - Ventricular tachycardia [Recovering/Resolving]
